FAERS Safety Report 17471200 (Version 1)
Quarter: 2020Q1

REPORT INFORMATION
  Report Type: Spontaneous
  Country: US (occurrence: US)
  Receive Date: 20200228
  Receipt Date: 20200228
  Transmission Date: 20200409
  Serious: No
  Sender: FDA-Public Use
  Company Number: US-BIOGEN-2019BI00805194

PATIENT
  Sex: Male

DRUGS (4)
  1. TECFIDERA [Suspect]
     Active Substance: DIMETHYL FUMARATE
     Indication: MULTIPLE SCLEROSIS
     Dosage: TAKE 1 CAPSULE (240MG)? BY MOUTH TWICE DAILY
     Route: 048
     Dates: start: 20191029
  2. MOTRIN [Concomitant]
     Active Substance: IBUPROFEN
     Route: 065
  3. TECFIDERA [Suspect]
     Active Substance: DIMETHYL FUMARATE
     Dosage: TAKE 1 CAPSULE (240MG)  BY MOUTH TWICE DAILY
     Route: 048
     Dates: start: 20191119
  4. TECFIDERA [Suspect]
     Active Substance: DIMETHYL FUMARATE
     Dosage: MAINTENANCE DOSE
     Route: 048
     Dates: start: 20191111

REACTIONS (8)
  - Abdominal pain upper [Unknown]
  - Flushing [Unknown]
  - Cognitive disorder [Not Recovered/Not Resolved]
  - Decreased appetite [Unknown]
  - Product dose omission [Recovered/Resolved]
  - Anxiety [Not Recovered/Not Resolved]
  - Nausea [Unknown]
  - Headache [Unknown]
